FAERS Safety Report 13430988 (Version 1)
Quarter: 2017Q2

REPORT INFORMATION
  Report Type: Spontaneous
  Country: US (occurrence: US)
  Receive Date: 20170411
  Receipt Date: 20170411
  Transmission Date: 20170830
  Serious: No
  Sender: FDA-Public Use
  Company Number: None

PATIENT
  Age: 43 Year
  Sex: Male
  Weight: 111.4 kg

DRUGS (1)
  1. CODEINE [Suspect]
     Active Substance: CODEINE
     Dates: start: 20120710

REACTIONS (1)
  - Rash [None]

NARRATIVE: CASE EVENT DATE: 20120710
